FAERS Safety Report 4633068-8 (Version None)
Quarter: 2005Q2

REPORT INFORMATION
  Report Type: 
  Country: None (occurrence: None)
  Receive Date: 20050411
  Receipt Date: 20050411
  Transmission Date: 20051028
  Serious: Yes (Other)
  Sender: FDA-Public Use
  Company Number: None

PATIENT
  Age: 63 Year
  Sex: Male
  Weight: 83.4619 kg

DRUGS (2)
  1. XOPENEX [Suspect]
     Indication: ASTHMA
     Dosage: 3 PER DAY   RESPIRATORY
     Route: 055
     Dates: start: 20050220, end: 20050223
  2. XOPENEX [Suspect]
     Indication: EMPHYSEMA
     Dosage: 3 PER DAY   RESPIRATORY
     Route: 055
     Dates: start: 20050220, end: 20050223

REACTIONS (1)
  - MYALGIA [None]
